FAERS Safety Report 4514942-X (Version None)
Quarter: 2004Q4

REPORT INFORMATION
  Report Type: 
  Country: None (occurrence: None)
  Receive Date: 20041201
  Receipt Date: 20041119
  Transmission Date: 20050328
  Serious: Yes (Hospitalization)
  Sender: FDA-Public Use
  Company Number: 200414399FR

PATIENT
  Age: 80 Year
  Sex: Female

DRUGS (20)
  1. LASILIX 40 MG [Suspect]
     Route: 048
  2. ALDACTONE [Suspect]
     Route: 048
  3. COZAAR [Suspect]
     Route: 048
  4. MEPRONIZINE [Concomitant]
     Route: 048
  5. TRINITRINE [Concomitant]
     Route: 048
  6. DIAFUSOR [Concomitant]
     Route: 062
  7. CORDARONE [Concomitant]
     Route: 048
     Dates: end: 20040101
  8. PREVISCAN [Concomitant]
     Route: 048
  9. ADANCOR [Concomitant]
     Route: 048
     Dates: end: 20040101
  10. TAHOR [Concomitant]
     Route: 048
  11. LEXOMIL [Concomitant]
     Route: 048
  12. BRONCHODUAL [Concomitant]
     Route: 055
  13. VENTOLIN [Concomitant]
     Route: 055
  14. VITAMINS, OTHER COMBINATIONS [Concomitant]
     Dosage: DOSE UNIT: UNITS
     Route: 048
  15. ANAFRANIL [Concomitant]
     Route: 048
  16. ZAMUDOL [Concomitant]
     Route: 048
  17. ZALDIAR [Concomitant]
     Route: 048
  18. OMEPRAZOLE [Concomitant]
     Route: 048
  19. TARDYFERON [Concomitant]
     Route: 048
  20. SOLUPRED [Concomitant]

REACTIONS (20)
  - ANAEMIA [None]
  - ARRHYTHMIA [None]
  - ATRIAL FIBRILLATION [None]
  - BLOOD CREATINE INCREASED [None]
  - BLOOD PRESSURE DIASTOLIC DECREASED [None]
  - BLOOD PRESSURE SYSTOLIC INCREASED [None]
  - BLOOD UREA INCREASED [None]
  - CARDIOMEGALY [None]
  - CONFUSIONAL STATE [None]
  - DIZZINESS [None]
  - DYSPNOEA [None]
  - FALL [None]
  - HEAD INJURY [None]
  - INFLAMMATION [None]
  - LOSS OF CONSCIOUSNESS [None]
  - ORTHOSTATIC HYPOTENSION [None]
  - PLEURAL EFFUSION [None]
  - RHABDOMYOLYSIS [None]
  - THROMBOCYTOPENIA [None]
  - VISION BLURRED [None]
